FAERS Safety Report 10431156 (Version 2)
Quarter: 2015Q1

REPORT INFORMATION
  Report Type: Spontaneous
  Country: US (occurrence: US)
  Receive Date: 20140904
  Receipt Date: 20150225
  Transmission Date: 20150720
  Serious: Yes (Life-Threatening, Hospitalization, Other)
  Sender: FDA-Public Use
  Company Number: US-BAYER-2014-129568

PATIENT
  Age: 25 Year
  Sex: Female
  Weight: 51.7 kg

DRUGS (3)
  1. MIRENA [Suspect]
     Active Substance: LEVONORGESTREL
     Indication: CONTRACEPTION
     Dosage: 20 MCG/24HR, CONT
     Route: 015
     Dates: start: 20100907, end: 20110826
  2. CELEXA [Concomitant]
     Active Substance: CITALOPRAM HYDROBROMIDE
  3. XANAX [Concomitant]
     Active Substance: ALPRAZOLAM
     Dosage: UNK, PRN

REACTIONS (14)
  - Uterine perforation [None]
  - Abdominal pain lower [None]
  - Anhedonia [None]
  - Anxiety [None]
  - Depression [None]
  - General physical health deterioration [None]
  - Genital haemorrhage [None]
  - Device issue [None]
  - Fear [None]
  - Depressed mood [None]
  - Device dislocation [None]
  - Sexual dysfunction [None]
  - Injury [None]
  - Emotional distress [None]

NARRATIVE: CASE EVENT DATE: 201108
